FAERS Safety Report 5284232-9 (Version None)
Quarter: 2007Q2

REPORT INFORMATION
  Report Type: 
  Country: None (occurrence: None)
  Receive Date: 20070403
  Receipt Date: 20070327
  Transmission Date: 20071010
  Serious: Yes (Other)
  Sender: FDA-Public Use
  Company Number: NL-BAYER-200711796GDS

PATIENT
  Age: 64 Year
  Sex: Female

DRUGS (2)
  1. AVELOX [Suspect]
     Indication: PNEUMONIA BACTERIAL
     Dosage: TOTAL DAILY DOSE: 400 MG  UNIT DOSE: 400 MG
     Route: 048
     Dates: start: 20060329, end: 20061017
  2. MYAMBUTOL [Suspect]
     Indication: PNEUMONIA BACTERIAL
     Dosage: TOTAL DAILY DOSE: 1200 MG  UNIT DOSE: 400 MG
     Route: 048
     Dates: start: 20060307, end: 20061017

REACTIONS (1)
  - OPTIC NEUROPATHY [None]
